FAERS Safety Report 7459493-8 (Version None)
Quarter: 2011Q2

REPORT INFORMATION
  Report Type: 
  Country: None (occurrence: None)
  Receive Date: 20110504
  Receipt Date: 20110504
  Transmission Date: 20111010
  Serious: Yes (Life-Threatening)
  Sender: FDA-Public Use
  Company Number: None

PATIENT
  Age: 64 Year
  Sex: Male
  Weight: 115 kg

DRUGS (1)
  1. IPILIMUMAB [Suspect]

REACTIONS (4)
  - COLITIS [None]
  - ABDOMINAL DISTENSION [None]
  - GASTROINTESTINAL NECROSIS [None]
  - ILEUS [None]
